FAERS Safety Report 8691193 (Version 2)
Quarter: 2012Q4

REPORT INFORMATION
  Report Type: 
  Country: US (occurrence: US)
  Receive Date: 20120730
  Receipt Date: 20120917
  Transmission Date: 20130627
  Serious: Yes (Hospitalization)
  Sender: FDA-Public Use
  Company Number: US-BAYER-2012-071746

PATIENT
  Age: 51 Year
  Sex: Female
  Weight: 62.13 kg

DRUGS (13)
  1. YAZ [Suspect]
     Indication: MENOPAUSAL SYMPTOMS
     Dosage: UNK
     Dates: start: 20071205, end: 20080904
  2. YAZ [Suspect]
     Indication: MENOPAUSE
     Dosage: UNK
     Dates: start: 20090407, end: 20100620
  3. GIANVI [Suspect]
     Indication: MENOPAUSAL SYMPTOMS
     Dosage: UNK
     Dates: start: 20100623, end: 20111105
  4. ALPRAZOLAM [Concomitant]
     Indication: PREMENSTRUAL SYNDROME
     Dosage: 0.25 mg, PRN
     Route: 048
     Dates: start: 1997
  5. ALPRAZOLAM [Concomitant]
     Indication: ANXIETY
     Dosage: 0.5 mg, TID as needed
     Route: 048
  6. ALPRAZOLAM [Concomitant]
     Indication: INSOMNIA
  7. ZOLPIDEM TARTRATE [Concomitant]
     Dosage: 10 mg, UNK
     Route: 048
  8. MULTIVITAMIN [Concomitant]
     Dosage: 1 tablet daily
     Route: 048
  9. ZANTAC [Concomitant]
     Indication: GASTROOESOPHAGEAL REFLUX DISEASE
     Dosage: 1 tablet BID
     Route: 048
  10. AMBIEN [Concomitant]
     Indication: INSOMNIA
     Dosage: 10 mg, HS
     Route: 048
  11. MAGNESIUM OXIDE [Concomitant]
     Dosage: 400 mg, BID
     Route: 048
  12. PERCOCET [Concomitant]
  13. FIORICET [Concomitant]

REACTIONS (3)
  - Pulmonary embolism [None]
  - Injury [None]
  - Dyspnoea [None]
